FAERS Safety Report 6752518-4 (Version None)
Quarter: 2010Q2

REPORT INFORMATION
  Report Type: 
  Country: None (occurrence: None)
  Receive Date: 20100528
  Receipt Date: 20100519
  Transmission Date: 20101027
  Serious: Yes (Other)
  Sender: FDA-Public Use
  Company Number: CIP10000972

PATIENT

DRUGS (5)
  1. ACTONEL [Suspect]
     Indication: OSTEOPOROSIS
     Dosage: 35 MG ONCE WEEKLY, ORAL
     Route: 048
     Dates: start: 20020101, end: 20090101
  2. EVISTA /01303201/ (RALOXIFENE) [Concomitant]
  3. LEVOTHYROXIN (LEVOTHYROXIN SODIUM) [Concomitant]
  4. RESTASIS (CICLOSPORIN) [Concomitant]
  5. AMIODARONE HCL [Concomitant]

REACTIONS (2)
  - ATRIAL FIBRILLATION [None]
  - LYMPHOMA [None]
